FAERS Safety Report 9501941 (Version 1)
Quarter: 2013Q3

REPORT INFORMATION
  Report Type: Spontaneous
  Country: GB (occurrence: GB)
  Receive Date: 20130905
  Receipt Date: 20130905
  Transmission Date: 20140515
  Serious: Yes (Other)
  Sender: FDA-Public Use
  Company Number: GB-ACTAVIS-2013-15679

PATIENT
  Sex: 0

DRUGS (3)
  1. PARACETAMOL (UNKNOWN) [Suspect]
     Indication: SUICIDE ATTEMPT
     Route: 048
  2. NUROFEN [Suspect]
     Indication: SUICIDE ATTEMPT
     Route: 048
  3. ANTIHISTAMINES [Suspect]
     Indication: SUICIDE ATTEMPT
     Route: 065

REACTIONS (12)
  - Suicide attempt [Not Recovered/Not Resolved]
  - Intentional overdose [Not Recovered/Not Resolved]
  - Haemoptysis [Not Recovered/Not Resolved]
  - Vision blurred [Not Recovered/Not Resolved]
  - Photopsia [Not Recovered/Not Resolved]
  - Fall [Not Recovered/Not Resolved]
  - Dizziness [Not Recovered/Not Resolved]
  - Abdominal pain upper [Not Recovered/Not Resolved]
  - Nausea [Not Recovered/Not Resolved]
  - Unevaluable event [Not Recovered/Not Resolved]
  - Headache [Not Recovered/Not Resolved]
  - Memory impairment [Not Recovered/Not Resolved]
